FAERS Safety Report 13993521 (Version 5)
Quarter: 2023Q4

REPORT INFORMATION
  Report Type: Spontaneous
  Country: FR (occurrence: FR)
  Receive Date: 20170920
  Receipt Date: 20231026
  Transmission Date: 20240110
  Serious: Yes (Hospitalization, Other)
  Sender: FDA-Public Use
  Company Number: None

PATIENT
  Age: 78 Year
  Sex: Female
  Weight: 68 kg

DRUGS (16)
  1. OXALIPLATIN [Suspect]
     Active Substance: OXALIPLATIN
     Indication: Rectal cancer
     Dosage: 50 MG
     Route: 042
     Dates: start: 2006, end: 2006
  2. PREDNISONE [Suspect]
     Active Substance: PREDNISONE
     Indication: Chronic obstructive pulmonary disease
     Dosage: 12 MG, QD
     Route: 048
     Dates: start: 201708
  3. CAPECITABINE [Suspect]
     Active Substance: CAPECITABINE
     Indication: Rectal cancer
     Dosage: 825 MG/M2,UNK
     Route: 048
     Dates: start: 2006, end: 2006
  4. BUDESONIDE [Suspect]
     Active Substance: BUDESONIDE
     Indication: Chronic obstructive pulmonary disease
     Dosage: 200 UG,BID
     Route: 055
     Dates: start: 2015
  5. MONTELUKAST SODIUM [Suspect]
     Active Substance: MONTELUKAST SODIUM
     Indication: Asthma
     Dosage: 100 MG, QD
     Route: 048
     Dates: start: 2015
  6. MONTELUKAST SODIUM [Suspect]
     Active Substance: MONTELUKAST SODIUM
     Dosage: 10 MG,QD
     Route: 048
     Dates: start: 2015
  7. MONTELUKAST SODIUM [Suspect]
     Active Substance: MONTELUKAST SODIUM
     Dosage: 10 UNK
     Route: 048
  8. BUMETANIDE [Suspect]
     Active Substance: BUMETANIDE
     Indication: Hypertension
     Dosage: 5 MG,QD
     Route: 048
     Dates: start: 201708
  9. POTASSIUM CHLORIDE [Suspect]
     Active Substance: POTASSIUM CHLORIDE
     Indication: Hypokalaemia
     Dosage: 2 DF,QD
     Route: 048
     Dates: start: 201708
  10. FLUCONAZOLE [Suspect]
     Active Substance: FLUCONAZOLE
     Indication: Fungal infection
     Dosage: 50 MOUTHWASH
     Route: 002
     Dates: start: 201708
  11. ALBUTEROL SULFATE [Suspect]
     Active Substance: ALBUTEROL SULFATE
     Indication: Asthma
     Dosage: 1 DF, PRN (IN CASE OF SHORTNESS OF BREATH)
     Route: 055
     Dates: start: 201708
  12. THEOPHYLLINE [Suspect]
     Active Substance: THEOPHYLLINE
     Indication: Chronic obstructive pulmonary disease
     Dosage: 300 MG, BID
     Route: 048
  13. THEOPHYLLINE [Suspect]
     Active Substance: THEOPHYLLINE
     Dosage: 600 MG, QD
     Route: 048
  14. BOTULINUM TOXIN TYPE A [Suspect]
     Active Substance: BOTULINUM TOXIN TYPE A
     Indication: Anal incontinence
     Dosage: 500 U, TOTAL, SINGLE / 9 INJECTIONS OF 500 UNITS
     Route: 030
     Dates: start: 201201, end: 201201
  15. GLYCOPYRRONIUM\INDACATEROL [Suspect]
     Active Substance: GLYCOPYRRONIUM\INDACATEROL
     Indication: Chronic obstructive pulmonary disease
     Dosage: 1 DF,QD
     Route: 055
     Dates: start: 201708
  16. BOTOX [Suspect]
     Active Substance: ONABOTULINUMTOXINA
     Indication: Anal incontinence
     Dosage: 9 UNK
     Route: 030
     Dates: start: 201201

REACTIONS (4)
  - Left ventricular failure [Not Recovered/Not Resolved]
  - Dilated cardiomyopathy [Not Recovered/Not Resolved]
  - Arteriosclerosis coronary artery [Not Recovered/Not Resolved]
  - Off label use [Unknown]

NARRATIVE: CASE EVENT DATE: 20170801
